FAERS Safety Report 10056558 (Version 1)
Quarter: 2014Q2

REPORT INFORMATION
  Report Type: Spontaneous
  Country: US (occurrence: US)
  Receive Date: 20140403
  Receipt Date: 20140403
  Transmission Date: 20141212
  Serious: No
  Sender: FDA-Public Use
  Company Number: US-PFIZER INC-2014092363

PATIENT
  Sex: Female

DRUGS (1)
  1. ADVIL PM [Suspect]
     Dosage: UNK, ONCE A DAY
     Dates: start: 20131225, end: 201312

REACTIONS (5)
  - Expired product administered [Unknown]
  - Swelling face [Unknown]
  - Eye swelling [Unknown]
  - Peripheral swelling [Unknown]
  - Drug ineffective [Unknown]
